FAERS Safety Report 5386878-6 (Version None)
Quarter: 2007Q3

REPORT INFORMATION
  Report Type: 
  Country: None (occurrence: None)
  Receive Date: 20070713
  Receipt Date: 20070703
  Transmission Date: 20080115
  Serious: Yes (Other)
  Sender: FDA-Public Use
  Company Number: US-PFIZER INC-2007047249

PATIENT
  Sex: Male
  Weight: 77.6 kg

DRUGS (14)
  1. SUTENT [Suspect]
     Indication: GASTROINTESTINAL STROMAL TUMOUR
  2. UROXATRAL [Concomitant]
  3. SIMVASTATIN [Concomitant]
  4. PREVACID [Concomitant]
  5. GLIMEPIRIDE [Concomitant]
  6. HYDROCHLOROTHIAZIDE [Concomitant]
  7. LISINOPRIL [Concomitant]
  8. DOCUSATE [Concomitant]
  9. MULTIVITAMIN [Concomitant]
  10. FINASTERIDE [Concomitant]
  11. GLUCOTROL [Concomitant]
  12. COLACE [Concomitant]
  13. TRIAMTERENE AND HYDROCHLOROTHIAZIDE [Concomitant]
  14. CIPROFLOXACIN [Concomitant]

REACTIONS (6)
  - ASTHENIA [None]
  - FATIGUE [None]
  - HAEMATOCRIT DECREASED [None]
  - HAEMOGLOBIN DECREASED [None]
  - STENT PLACEMENT [None]
  - SWELLING [None]
